FAERS Safety Report 9838221 (Version 2)
Quarter: 2014Q1

REPORT INFORMATION
  Report Type: Spontaneous
  Country: IT (occurrence: IT)
  Receive Date: 20140123
  Receipt Date: 20140123
  Transmission Date: 20141002
  Serious: Yes (Other)
  Sender: FDA-Public Use
  Company Number: PHHY2013IT135916

PATIENT
  Age: 42 Year
  Sex: Male

DRUGS (4)
  1. TEGRETOL [Suspect]
     Indication: EPILEPSY
     Dosage: 1600 MG, DAILY
     Route: 048
     Dates: start: 20120101, end: 20131112
  2. MACLADIN [Interacting]
     Indication: BRONCHITIS
     Dosage: 500 MG, UNK
     Route: 048
     Dates: start: 20131106, end: 20131112
  3. DEPAKIN CHRONO [Concomitant]
     Indication: EPILEPSY
     Dosage: 300 MG, UNK
     Route: 048
     Dates: start: 20120101, end: 20131112
  4. DEPAKIN CHRONO [Concomitant]
     Dosage: 1500 MG, UNK
     Route: 048
     Dates: start: 20130101, end: 20131112

REACTIONS (6)
  - Bradykinesia [Recovering/Resolving]
  - Bradyphrenia [Recovering/Resolving]
  - Vomiting [Recovering/Resolving]
  - Diplopia [Recovering/Resolving]
  - Dizziness [Recovering/Resolving]
  - Drug interaction [Recovering/Resolving]
